FAERS Safety Report 22641654 (Version 2)
Quarter: 2023Q2

REPORT INFORMATION
  Report Type: Spontaneous
  Country: FR (occurrence: FR)
  Receive Date: 20230626
  Receipt Date: 20230628
  Transmission Date: 20230722
  Serious: Yes (Other)
  Sender: FDA-Public Use
  Company Number: FR-BAYER-2023A088786

PATIENT
  Age: 53 Year
  Sex: Female

DRUGS (1)
  1. ULTRAVIST [Suspect]
     Active Substance: IOPROMIDE
     Indication: Computerised tomogram
     Dosage: 80 ML, ONCE
     Dates: start: 20230621, end: 20230621

REACTIONS (4)
  - Rash [None]
  - Paraesthesia ear [None]
  - Pharyngeal paraesthesia [None]
  - Intranasal paraesthesia [None]

NARRATIVE: CASE EVENT DATE: 20230621
